FAERS Safety Report 13537203 (Version 1)
Quarter: 2017Q2

REPORT INFORMATION
  Report Type: Spontaneous
  Country: FR (occurrence: FR)
  Receive Date: 20170511
  Receipt Date: 20170511
  Transmission Date: 20170830
  Serious: Yes (Other)
  Sender: FDA-Public Use
  Company Number: FR-GLAXOSMITHKLINE-FR2017GSK067066

PATIENT
  Sex: Male

DRUGS (7)
  1. SILODYX [Concomitant]
     Active Substance: SILODOSIN
     Dosage: 8 MG, 1D
  2. BISOPROLOL [Concomitant]
     Active Substance: BISOPROLOL
  3. PREVISCAN (FLUINDIONE) [Concomitant]
     Active Substance: FLUINDIONE
  4. RAMIPRIL. [Concomitant]
     Active Substance: RAMIPRIL
     Dosage: 5 MG, 1D
  5. TRAMADOL. [Concomitant]
     Active Substance: TRAMADOL
  6. VESICARE [Concomitant]
     Active Substance: SOLIFENACIN SUCCINATE
     Dosage: 5 MG, 1D
  7. AVODART [Suspect]
     Active Substance: DUTASTERIDE
     Indication: PRODUCT USED FOR UNKNOWN INDICATION
     Dosage: 1 UNK, 1D
     Route: 048
     Dates: start: 201704, end: 2017

REACTIONS (3)
  - Fatigue [Recovered/Resolved]
  - Tachycardia [Recovered/Resolved]
  - Arrhythmia [Recovered/Resolved]

NARRATIVE: CASE EVENT DATE: 2017
